FAERS Safety Report 11688989 (Version 1)
Quarter: 2015Q4

REPORT INFORMATION
  Report Type: Spontaneous
  Country: US (occurrence: None)
  Receive Date: 20151030
  Receipt Date: 20151030
  Transmission Date: 20160304
  Serious: No
  Sender: FDA-Public Use
  Company Number: None

PATIENT
  Age: 22 Year
  Sex: Male
  Weight: 79.38 kg

DRUGS (1)
  1. AMPHETAMINE AND DEXTROAMPHETAMIN 30 MG [Suspect]
     Active Substance: AMPHETAMINE\DEXTROAMPHETAMINE
     Indication: ATTENTION DEFICIT/HYPERACTIVITY DISORDER
     Dosage: 30MG (AM), 20MG (PM) ONCE DAILY TAKEN BY MOUTH
     Route: 048
     Dates: start: 20150923, end: 20151023

REACTIONS (5)
  - Product quality issue [None]
  - Sluggishness [None]
  - Product substitution issue [None]
  - Drug effect decreased [None]
  - Disturbance in attention [None]

NARRATIVE: CASE EVENT DATE: 20150923
